FAERS Safety Report 21132556 (Version 7)
Quarter: 2022Q4

REPORT INFORMATION
  Report Type: Spontaneous
  Country: US (occurrence: US)
  Receive Date: 20220726
  Receipt Date: 20221228
  Transmission Date: 20230113
  Serious: Yes (Hospitalization)
  Sender: FDA-Public Use
  Company Number: US-BIOVITRUM-2022US07526

PATIENT
  Age: 39 Year
  Sex: Female

DRUGS (2)
  1. KINERET [Suspect]
     Active Substance: ANAKINRA
     Indication: Still^s disease
     Dates: start: 20220510
  2. KINERET [Suspect]
     Active Substance: ANAKINRA
     Dates: start: 20220510

REACTIONS (33)
  - Pain in extremity [Unknown]
  - Arthralgia [Unknown]
  - Swelling [Unknown]
  - Inflammation [Unknown]
  - Blood test abnormal [Unknown]
  - Heavy menstrual bleeding [Unknown]
  - Ovarian cyst [Unknown]
  - Pain [Unknown]
  - Rash [Unknown]
  - Pruritus [Unknown]
  - Crying [Unknown]
  - Hyperhidrosis [Recovering/Resolving]
  - Cough [Unknown]
  - Fatigue [Unknown]
  - Ear pain [Unknown]
  - Myalgia [Unknown]
  - Back pain [Unknown]
  - Chills [Unknown]
  - Pyrexia [Unknown]
  - Dizziness [Unknown]
  - Feeling abnormal [Unknown]
  - Eating disorder [Unknown]
  - Hypoaesthesia [Unknown]
  - Insomnia [Unknown]
  - Anxiety [Unknown]
  - Feeling hot [Unknown]
  - Malaise [Unknown]
  - Eyelids pruritus [Unknown]
  - Illness [Unknown]
  - Hypersensitivity [Not Recovered/Not Resolved]
  - Headache [Unknown]
  - Product dose omission issue [Unknown]
  - Off label use [Unknown]

NARRATIVE: CASE EVENT DATE: 20220510
